FAERS Safety Report 16995958 (Version 2)
Quarter: 2020Q4

REPORT INFORMATION
  Report Type: Spontaneous
  Country: US (occurrence: US)
  Receive Date: 20191105
  Receipt Date: 20201021
  Transmission Date: 20210113
  Serious: Yes (Hospitalization, Other)
  Sender: FDA-Public Use
  Company Number: US-SUN PHARMACEUTICAL INDUSTRIES LTD-2019R1-225614

PATIENT
  Age: 13 Month
  Sex: Male
  Weight: 2.3 kg

DRUGS (2)
  1. ACETAMINOPHEN. [Suspect]
     Active Substance: ACETAMINOPHEN
     Dosage: 2 DOSAGE FORM, ALL 10-15 MG/KG/DOSE
     Route: 065
  2. ACETAMINOPHEN. [Suspect]
     Active Substance: ACETAMINOPHEN
     Indication: FEBRILE INFECTION
     Dosage: ALL 10-15 MG/KG/DOSE
     Route: 065

REACTIONS (4)
  - Hepatosplenomegaly [Recovered/Resolved]
  - Hepatic failure [Recovered/Resolved]
  - Toxicity to various agents [Recovered/Resolved]
  - Mitochondrial toxicity [Recovered/Resolved]
